FAERS Safety Report 7952627-8 (Version None)
Quarter: 2011Q4

REPORT INFORMATION
  Report Type: 
  Country: None (occurrence: None)
  Receive Date: 20111201
  Receipt Date: 20111129
  Transmission Date: 20120403
  Serious: Yes (Hospitalization)
  Sender: FDA-Public Use
  Company Number: GB-ROXANE LABORATORIES, INC.-2011-RO-01706RO

PATIENT
  Age: 26 Year
  Sex: Female

DRUGS (4)
  1. AZATHIOPRINE [Suspect]
     Dosage: 150 MG
  2. HYDROXYCHLOROQUINE SULFATE [Suspect]
     Dosage: 200 MG
  3. PREDNISOLONE [Suspect]
     Dosage: 10 MG
  4. HEPARIN [Suspect]

REACTIONS (1)
  - HERPES ZOSTER [None]
